FAERS Safety Report 8522475-9 (Version None)
Quarter: 2012Q3

REPORT INFORMATION
  Report Type: 
  Country: None (occurrence: None)
  Receive Date: 20120719
  Receipt Date: 20120717
  Transmission Date: 20120928
  Serious: Yes (Death, Hospitalization)
  Sender: FDA-Public Use
  Company Number: US-ELI_LILLY_AND_COMPANY-US201207005141

PATIENT
  Sex: Male

DRUGS (1)
  1. GEMZAR [Suspect]
     Indication: PANCREATIC CARCINOMA
     Dosage: UNK
     Dates: start: 20120530

REACTIONS (9)
  - FAECES DISCOLOURED [None]
  - HYPONATRAEMIA [None]
  - HYPOCHLORAEMIA [None]
  - PYREXIA [None]
  - TACHYCARDIA [None]
  - DEATH [None]
  - HYPOTENSION [None]
  - DIARRHOEA [None]
  - MALAISE [None]
